FAERS Safety Report 17908790 (Version 1)
Quarter: 2020Q2

REPORT INFORMATION
  Report Type: Spontaneous
  Country: FR (occurrence: FR)
  Receive Date: 20200617
  Receipt Date: 20200617
  Transmission Date: 20200714
  Serious: Yes (Other)
  Sender: FDA-Public Use
  Company Number: FR-NOVOPROD-733679

PATIENT
  Age: 16 Year
  Sex: Male
  Weight: 39 kg

DRUGS (6)
  1. LEVOTHYROX [Concomitant]
     Active Substance: LEVOTHYROXINE
     Indication: HYPOTHYROIDISM
     Dosage: 100 ?G, QD
     Route: 048
     Dates: start: 20090216, end: 20091109
  2. LEVOTHYROX [Concomitant]
     Active Substance: LEVOTHYROXINE
     Dosage: 125 ?G, QD
     Route: 048
     Dates: start: 20091110, end: 2010
  3. NORDITROPIN [Suspect]
     Active Substance: SOMATROPIN
     Indication: SMALL FOR DATES BABY
     Dosage: 1 MG, QD
     Route: 058
     Dates: start: 20070827, end: 20090817
  4. NORDITROPIN [Suspect]
     Active Substance: SOMATROPIN
     Dosage: 1 MG, QD
     Route: 058
     Dates: start: 20100126, end: 20100607
  5. LEVOTHYROX [Concomitant]
     Active Substance: LEVOTHYROXINE
     Dosage: 175 ?G, QD
     Route: 048
     Dates: start: 2010
  6. LEVOTHYROX [Concomitant]
     Active Substance: LEVOTHYROXINE
     Dosage: 150 ?G, QD
     Route: 048
     Dates: start: 20100126, end: 2010

REACTIONS (8)
  - Face oedema [Recovered/Resolved]
  - Concomitant disease progression [Unknown]
  - Pulmonary artery atresia [Unknown]
  - Heart injury [Recovered/Resolved]
  - Hepatomegaly [Recovered/Resolved]
  - Localised oedema [Recovered/Resolved]
  - Venous pressure jugular [Recovered/Resolved]
  - Oedema peripheral [Recovered/Resolved]

NARRATIVE: CASE EVENT DATE: 200903
